FAERS Safety Report 13246170 (Version 1)
Quarter: 2017Q1

REPORT INFORMATION
  Report Type: Spontaneous
  Country: US (occurrence: US)
  Receive Date: 20170217
  Receipt Date: 20170217
  Transmission Date: 20170428
  Serious: No
  Sender: FDA-Public Use
  Company Number: US-ASTRAZENECA-2016SE96732

PATIENT
  Sex: Female

DRUGS (1)
  1. SYMBICORT [Suspect]
     Active Substance: BUDESONIDE\FORMOTEROL FUMARATE DIHYDRATE
     Indication: ASTHMA
     Dosage: 120 INHALATIONS, TWO PUFFS TWICE A DAY, FOR ABOUT 2 TO 3 YEARS
     Route: 055

REACTIONS (3)
  - Malaise [Unknown]
  - Dyspnoea [Unknown]
  - Drug ineffective [Unknown]
